FAERS Safety Report 11076137 (Version 1)
Quarter: 2015Q2

REPORT INFORMATION
  Report Type: Spontaneous
  Country: US (occurrence: US)
  Receive Date: 20150429
  Receipt Date: 20150429
  Transmission Date: 20150821
  Serious: No
  Sender: FDA-Public Use
  Company Number: US-PFIZER INC-2015141502

PATIENT
  Age: 66 Year
  Sex: Female
  Weight: 54 kg

DRUGS (6)
  1. DIVALPROEX [Suspect]
     Active Substance: DIVALPROEX SODIUM
     Dosage: 500 MG, UNK
     Dates: start: 20140624
  2. SERTRALINE HCL [Suspect]
     Active Substance: SERTRALINE HYDROCHLORIDE
     Indication: DEPRESSION
     Dosage: ONE AND ONE HALF 100MG TABLET A DAY
     Route: 048
     Dates: start: 20150123
  3. BENZTROPINE [Suspect]
     Active Substance: BENZTROPINE
     Dosage: 5 MG, UNK
     Dates: start: 20141106
  4. CITALOPRAM [Suspect]
     Active Substance: CITALOPRAM HYDROBROMIDE
     Dosage: 20 MG, UNK
     Dates: start: 20140124
  5. OMEPRAZOLE. [Suspect]
     Active Substance: OMEPRAZOLE
     Dosage: 40 MG, UNK
     Dates: start: 20141106
  6. SEROQUEL [Suspect]
     Active Substance: QUETIAPINE FUMARATE
     Indication: DEPRESSION
     Dosage: 150 MG, UNK
     Dates: start: 20141106

REACTIONS (1)
  - Blood cholesterol increased [Unknown]
